FAERS Safety Report 7906920-5 (Version None)
Quarter: 2011Q4

REPORT INFORMATION
  Report Type: 
  Country: None (occurrence: None)
  Receive Date: 20111109
  Receipt Date: 20111109
  Transmission Date: 20120403
  Serious: Yes (Hospitalization)
  Sender: FDA-Public Use
  Company Number: None

PATIENT
  Sex: Male

DRUGS (1)
  1. ADCIRCA [Suspect]
     Indication: PULMONARY ARTERIAL HYPERTENSION
     Dosage: 20MG;ONCE DAILY;BY MOUTH
     Route: 048
     Dates: start: 20111005, end: 20111031

REACTIONS (2)
  - PAIN [None]
  - DYSPNOEA [None]
